FAERS Safety Report 7522217-X (Version None)
Quarter: 2011Q2

REPORT INFORMATION
  Report Type: 
  Country: None (occurrence: None)
  Receive Date: 20110603
  Receipt Date: 20110501
  Transmission Date: 20111010
  Serious: No
  Sender: FDA-Public Use
  Company Number: US-BAYER-2011-038566

PATIENT
  Sex: Female

DRUGS (2)
  1. ALEVE (CAPLET) [Suspect]
     Indication: ARTHRITIS
     Dosage: 1 DF, BID
     Route: 048
  2. FISH OIL [Concomitant]
     Dosage: 2 DF, QD
     Route: 048

REACTIONS (1)
  - PAIN [None]
